FAERS Safety Report 4631103-4 (Version None)
Quarter: 2005Q2

REPORT INFORMATION
  Report Type: 
  Country: None (occurrence: None)
  Receive Date: 20050406
  Receipt Date: 20050328
  Transmission Date: 20051028
  Serious: Yes (Other)
  Sender: FDA-Public Use
  Company Number: 2005051150

PATIENT
  Age: 54 Year
  Sex: Female
  Weight: 63.5036 kg

DRUGS (13)
  1. ACCUPRIL [Suspect]
     Indication: ILL-DEFINED DISORDER
     Dosage: 40 MG (20 MG, 2 IN 1 D), ORAL
     Route: 048
     Dates: start: 20000101, end: 20050315
  2. CARVEDILOL [Concomitant]
  3. BELLASPON RETARD (BELLADONNA ALKALOIDS, ERGOTAMINE TARTRATE, PHENOBARB [Concomitant]
  4. SULFASALAZINE [Concomitant]
  5. PREDNISONE [Concomitant]
  6. RESPAIRE-SR-120 (GUAIFENESIN, PSEUDOEPHEDRINE HYDROCHLORIDE) [Concomitant]
  7. RANITIDINE HYDROCHLORIDE [Concomitant]
  8. FUROSEMIDE )FURSOEMIDE) [Concomitant]
  9. POTASSIUM ACETATE [Concomitant]
  10. PIROXICAM [Concomitant]
  11. MONTELUKAST SODIUM (MONTELUKAST SODIUM) [Concomitant]
  12. MECLOZINE (MECLOZINE) [Concomitant]
  13. PILOCARPINE HYDROCHLORIDE (PIROCARPINE HYDROCHLORIDE) [Concomitant]

REACTIONS (6)
  - ASTHENIA [None]
  - BREAST CANCER [None]
  - COUGH [None]
  - DIZZINESS [None]
  - FATIGUE [None]
  - SINUSITIS [None]
